FAERS Safety Report 5413354-4 (Version None)
Quarter: 2007Q3

REPORT INFORMATION
  Report Type: 
  Country: None (occurrence: None)
  Receive Date: 20070814
  Receipt Date: 20070810
  Transmission Date: 20080115
  Serious: Yes (Death, Other)
  Sender: FDA-Public Use
  Company Number: US-BRISTOL-MYERS SQUIBB COMPANY-13868492

PATIENT
  Age: 84 Year
  Sex: Male
  Weight: 99 kg

DRUGS (8)
  1. CARDIOLITE [Suspect]
     Indication: CARDIAC STRESS TEST
     Route: 042
     Dates: start: 20070731, end: 20070731
  2. ARICEPT [Concomitant]
  3. ACTOS [Concomitant]
  4. ATENOLOL [Concomitant]
  5. GLIPIZIDE [Concomitant]
  6. LOVASTATIN [Concomitant]
  7. CLONIDINE [Concomitant]
  8. FISH OIL [Concomitant]

REACTIONS (6)
  - CARDIAC FAILURE [None]
  - COMA [None]
  - HYPOTENSION [None]
  - PYREXIA [None]
  - RENAL FAILURE [None]
  - RESPIRATORY FAILURE [None]
